FAERS Safety Report 9792901 (Version 1)
Quarter: 2014Q1

REPORT INFORMATION
  Report Type: Spontaneous
  Country: US (occurrence: US)
  Receive Date: 20140102
  Receipt Date: 20140102
  Transmission Date: 20141002
  Serious: No
  Sender: FDA-Public Use
  Company Number: US-SA-2013SA128879

PATIENT
  Age: 44 Year
  Sex: Female

DRUGS (5)
  1. AUBAGIO [Suspect]
     Indication: PRODUCT USED FOR UNKNOWN INDICATION
     Route: 065
     Dates: start: 20130915
  2. SUMATRIPTAN SUCCINATE [Concomitant]
     Indication: MIGRAINE
     Route: 048
     Dates: start: 20130107
  3. VITAMIN D [Concomitant]
     Indication: NUTRITIONAL SUPPLEMENTATION
     Route: 048
     Dates: start: 20120606
  4. ADVIL [Concomitant]
     Indication: PAIN
     Route: 048
     Dates: start: 20030101
  5. VITAMIN D3 [Concomitant]
     Indication: NUTRITIONAL SUPPLEMENTATION
     Route: 048
     Dates: start: 20120601

REACTIONS (1)
  - Alopecia [Unknown]
